FAERS Safety Report 9240486 (Version 1)
Quarter: 2013Q1

REPORT INFORMATION
  Report Type: Spontaneous
  Country: US (occurrence: None)
  Receive Date: 20121120
  Receipt Date: 20121120
  Transmission Date: 20140127
  Serious: No
  Sender: FDA-Public Use
  Company Number: 1000037857

PATIENT
  Sex: Female

DRUGS (2)
  1. VIIBRYD [Suspect]
     Dosage: 40MG (40MG, 1 IN 1 D), ORAL
     Route: 048
  2. SAFRIS [Suspect]

REACTIONS (3)
  - Abnormal dreams [None]
  - Self esteem decreased [None]
  - Anxiety [None]
